FAERS Safety Report 8717966 (Version 2)
Quarter: 2013Q1

REPORT INFORMATION
  Report Type: Spontaneous
  Country: JP (occurrence: None)
  Receive Date: 20120726
  Receipt Date: 20121220
  Transmission Date: 20140127
  Serious: Yes (Hospitalization)
  Sender: FDA-Public Use
  Company Number: DSJ-2012-10803

PATIENT
  Age: 44 Year
  Sex: Male
  Weight: 64 kg

DRUGS (5)
  1. OLMESARTAN MEDOXOMIL [Suspect]
     Indication: HYPERTENSION
     Dosage: 20 MG (20 MG,1 IN 1 D),PER ORAL ; 1000-1200MG (1 IN 1 D),PER ORAL
     Route: 048
     Dates: start: 20110902, end: 20120525
  2. EPZICOM [Suspect]
     Indication: HIV INFECTION
     Dosage: 600-300 MG1 IN 1DAY
     Route: 048
     Dates: start: 20100608, end: 20120525
  3. MYSLEE (ZOLPIDEM TARTRATE) (TABLET) (ZOLPIDEM TARTRATE) [Concomitant]
  4. DARUNAVIR [Concomitant]
  5. RITONAVIR [Concomitant]

REACTIONS (11)
  - Renal failure acute [None]
  - Asthenia [None]
  - Malaise [None]
  - Haemodialysis [None]
  - Intentional overdose [None]
  - Suicide attempt [None]
  - Hypersomnia [None]
  - Blood pH decreased [None]
  - Blood bicarbonate decreased [None]
  - Ascites [None]
  - Heart rate decreased [None]
